FAERS Safety Report 10642553 (Version 1)
Quarter: 2014Q4

REPORT INFORMATION
  Report Type: Spontaneous
  Country: US (occurrence: None)
  Receive Date: 20141209
  Receipt Date: 20141209
  Transmission Date: 20150529
  Serious: Yes (Death, Life-Threatening, Hospitalization, Disabling, Other)
  Sender: FDA-Public Use
  Company Number: None

PATIENT
  Age: 79 Year
  Sex: Male
  Weight: 70.76 kg

DRUGS (2)
  1. WARFARIN 5 MG [Suspect]
     Active Substance: WARFARIN
     Indication: CHRONIC OBSTRUCTIVE PULMONARY DISEASE
     Dosage: 1 PILL EVERY 24 HOURS ONCE DAILY TAKEN BY MOUTH
     Route: 048
     Dates: start: 20040610, end: 20130809
  2. LOVENOX [Suspect]
     Active Substance: ENOXAPARIN SODIUM
     Indication: CHRONIC OBSTRUCTIVE PULMONARY DISEASE
     Dosage: 2 INJECTIONS DAIY TWICE DAILY GIVEN INTO/UNDER THE SKIN
     Dates: start: 20120901, end: 20120930

REACTIONS (2)
  - Epistaxis [None]
  - Pain [None]

NARRATIVE: CASE EVENT DATE: 20141208
